FAERS Safety Report 6601172-0 (Version None)
Quarter: 2010Q1

REPORT INFORMATION
  Report Type: 
  Country: None (occurrence: None)
  Receive Date: 20100224
  Receipt Date: 20100224
  Transmission Date: 20100710
  Serious: No
  Sender: FDA-Public Use
  Company Number: None

PATIENT
  Sex: Female
  Weight: 71.6683 kg

DRUGS (2)
  1. LISINOPRIL [Suspect]
     Indication: BLOOD PRESSURE INCREASED
     Dosage: ONE TAB DAILY BY MOUTH
     Route: 048
     Dates: start: 20090101
  2. LISINOPRIL [Suspect]
     Indication: RENAL DISORDER
     Dosage: ONE TAB DAILY BY MOUTH
     Route: 048
     Dates: start: 20090101

REACTIONS (8)
  - CHEILITIS [None]
  - COUGH [None]
  - DRY MOUTH [None]
  - DRY SKIN [None]
  - LIP DRY [None]
  - RASH GENERALISED [None]
  - SKIN EXFOLIATION [None]
  - THERMAL BURN [None]
